FAERS Safety Report 9372899 (Version 2)
Quarter: 2013Q3

REPORT INFORMATION
  Report Type: Spontaneous
  Country: CH (occurrence: CH)
  Receive Date: 20130627
  Receipt Date: 20130709
  Transmission Date: 20140515
  Serious: Yes (Other)
  Sender: FDA-Public Use
  Company Number: CH-JNJFOC-20130504872

PATIENT
  Age: 37 Year
  Sex: Female

DRUGS (5)
  1. REMICADE [Suspect]
     Indication: INFLAMMATORY BOWEL DISEASE
     Dosage: INTERVAL: 6-8 WEEKS
     Route: 042
     Dates: start: 20090701
  2. REMICADE [Suspect]
     Indication: INFLAMMATORY BOWEL DISEASE
     Route: 042
     Dates: start: 2008, end: 2008
  3. PREDNISONE [Suspect]
     Indication: INFLAMMATORY BOWEL DISEASE
     Route: 048
     Dates: start: 2012, end: 2012
  4. CALCIMAGON-D3 [Suspect]
     Indication: INFLAMMATORY BOWEL DISEASE
     Dosage: DOSE: 2500/8MG
     Route: 048
  5. ELEVIT [Concomitant]
     Indication: PREGNANCY
     Route: 048

REACTIONS (5)
  - Caesarean section [Recovered/Resolved]
  - Exposure during pregnancy [Recovered/Resolved]
  - Inflammatory bowel disease [Unknown]
  - Weight decreased [Unknown]
  - Anaemia [Not Recovered/Not Resolved]
